FAERS Safety Report 17276640 (Version 1)
Quarter: 2020Q1

REPORT INFORMATION
  Report Type: Spontaneous
  Country: US (occurrence: US)
  Receive Date: 20191226
  Receipt Date: 20191226
  Transmission Date: 20200409
  Serious: Yes (Death)
  Sender: FDA-Public Use
  Company Number: None

PATIENT
  Age: 65 Year
  Sex: Female

DRUGS (3)
  1. ZELBORAF [Suspect]
     Active Substance: VEMURAFENIB
  2. COTELLIC [Suspect]
     Active Substance: COBIMETINIB
     Dosage: ?          OTHER DOSE:2X TABS WITH VEMUR;?
     Route: 048
     Dates: start: 20181128, end: 20191203
  3. COTELLIC [Suspect]
     Active Substance: COBIMETINIB
     Indication: MALIGNANT MELANOMA
     Dosage: ?          OTHER DOSE:3X TABS WITH COTEL;?
     Route: 048
     Dates: start: 20181128, end: 20191203

REACTIONS (1)
  - Death [None]

NARRATIVE: CASE EVENT DATE: 20191203
